FAERS Safety Report 15546350 (Version 2)
Quarter: 2018Q4

REPORT INFORMATION
  Report Type: Spontaneous
  Country: JP (occurrence: JP)
  Receive Date: 20181024
  Receipt Date: 20181112
  Transmission Date: 20190205
  Serious: Yes (Other)
  Sender: FDA-Public Use
  Company Number: JP-OTSUKA-2018_029681

PATIENT
  Age: 65 Year
  Sex: Male

DRUGS (5)
  1. REXULTI [Suspect]
     Active Substance: BREXPIPRAZOLE
     Indication: SCHIZOPHRENIA
     Dosage: 2 MG, DAILY DOSE
     Route: 048
     Dates: start: 20180622, end: 20180821
  2. LODOPIN [Suspect]
     Active Substance: ZOTEPINE
     Indication: PRODUCT USED FOR UNKNOWN INDICATION
     Dosage: 100 MG (2 TABLETS), DAILY DOSE
     Route: 048
     Dates: end: 20180621
  3. REXULTI [Suspect]
     Active Substance: BREXPIPRAZOLE
     Indication: SCHIZOPHRENIA
     Dosage: 1MG , DAILY DOSE
     Route: 048
     Dates: start: 20180608, end: 20180621
  4. REXULTI [Suspect]
     Active Substance: BREXPIPRAZOLE
     Dosage: 2 MG, UNK
     Route: 065
  5. LEVOTOMIN [Suspect]
     Active Substance: LEVOMEPROMAZINE
     Indication: PRODUCT USED FOR UNKNOWN INDICATION
     Dosage: 150 MG (3TABLETS), DAILY DOSE
     Route: 048
     Dates: start: 20170615, end: 20180802

REACTIONS (5)
  - Rhabdomyolysis [Recovering/Resolving]
  - Neuroleptic malignant syndrome [Recovered/Resolved]
  - Insomnia [Unknown]
  - Haemorrhage subcutaneous [Unknown]
  - Delusion [Recovering/Resolving]

NARRATIVE: CASE EVENT DATE: 20180814
